FAERS Safety Report 4352855-7 (Version None)
Quarter: 2004Q2

REPORT INFORMATION
  Report Type: 
  Country: None (occurrence: None)
  Receive Date: 20040430
  Receipt Date: 20040217
  Transmission Date: 20050107
  Serious: No
  Sender: FDA-Public Use
  Company Number: 204788

PATIENT
  Age: 19 Year
  Sex: Female

DRUGS (1)
  1. XOLAIR [Suspect]
     Dosage: 300 MG, Q4W
     Dates: start: 20031017, end: 20040113

REACTIONS (1)
  - PREGNANCY [None]
